FAERS Safety Report 7781572-6 (Version None)
Quarter: 2011Q3

REPORT INFORMATION
  Report Type: 
  Country: None (occurrence: None)
  Receive Date: 20110923
  Receipt Date: 20110920
  Transmission Date: 20111222
  Serious: Yes (Hospitalization)
  Sender: FDA-Public Use
  Company Number: 2011AP002021

PATIENT
  Age: 69 Year

DRUGS (10)
  1. CYCLIZINE (CYCLIZINE) [Concomitant]
  2. FOLIC ACID [Concomitant]
  3. LEVOTHYROXINE SODIUM [Concomitant]
  4. LEFLUNOMIDE [Suspect]
     Indication: RHEUMATOID ARTHRITIS
     Dosage: PO
     Route: 048
     Dates: start: 20110715, end: 20110801
  5. PREOTACT (PARATHYROID HORMONE) [Concomitant]
  6. SENNA [Concomitant]
  7. SIMVASTATIN [Concomitant]
  8. TRAMADOL HCL [Concomitant]
  9. FEXOFENADINE HCL [Concomitant]
  10. ACETAMINOPHEN [Concomitant]

REACTIONS (3)
  - DIARRHOEA [None]
  - PYREXIA [None]
  - RASH ERYTHEMATOUS [None]
